FAERS Safety Report 6699149-2 (Version None)
Quarter: 2010Q2

REPORT INFORMATION
  Report Type: 
  Country: None (occurrence: None)
  Receive Date: 20100427
  Receipt Date: 20100416
  Transmission Date: 20101027
  Serious: Yes (Hospitalization)
  Sender: FDA-Public Use
  Company Number: TW-ELI_LILLY_AND_COMPANY-TW201004004490

PATIENT
  Age: 79 Year
  Sex: Male
  Weight: 53.5 kg

DRUGS (3)
  1. TERIPARATIDE [Suspect]
     Indication: BACK PAIN
     Dosage: 20 UG, DAILY (1/D)
     Route: 058
     Dates: start: 20090608
  2. CALCITRIOL [Concomitant]
     Indication: MINERAL SUPPLEMENTATION
     Dosage: 0.5 UG, DAILY (1/D)
     Dates: start: 20090706
  3. TRAMADOL SANDOZ [Concomitant]
     Indication: ANALGESIC THERAPY
     Dosage: 200 MG, DAILY (1/D)
     Dates: start: 20100222

REACTIONS (3)
  - ANAEMIA [None]
  - NON-CARDIAC CHEST PAIN [None]
  - PANCYTOPENIA [None]
